FAERS Safety Report 23433310 (Version 5)
Quarter: 2024Q3

REPORT INFORMATION
  Report Type: Spontaneous
  Country: US (occurrence: US)
  Receive Date: 20240123
  Receipt Date: 20240722
  Transmission Date: 20241016
  Serious: No
  Sender: PFIZER
  Company Number: US-PFIZER INC-PV202400008497

PATIENT
  Age: 78 Year
  Sex: Female

DRUGS (2)
  1. IBRANCE [Suspect]
     Active Substance: PALBOCICLIB
     Dosage: 125 MG
  2. IBRANCE [Suspect]
     Active Substance: PALBOCICLIB
     Dosage: 100 MG DAILY, 3 WEEKS ON, 1 WEEK OFF
     Route: 048

REACTIONS (4)
  - Hypoacusis [Unknown]
  - Malaise [Unknown]
  - Pyrexia [Unknown]
  - Illness [Unknown]
